FAERS Safety Report 8538584-4 (Version None)
Quarter: 2012Q3

REPORT INFORMATION
  Report Type: 
  Country: None (occurrence: None)
  Receive Date: 20120726
  Receipt Date: 20120714
  Transmission Date: 20120928
  Serious: Yes (Other)
  Sender: FDA-Public Use
  Company Number: US-BAYER-2012-070495

PATIENT
  Sex: Female

DRUGS (2)
  1. SORAFENIB (RAF KINASE INHIBITOR) [Suspect]
     Dosage: 400 MG, BID
     Route: 048
     Dates: start: 20120702
  2. SORAFENIB (RAF KINASE INHIBITOR) [Suspect]
     Dosage: 200 MG, UNK

REACTIONS (6)
  - BLOOD POTASSIUM INCREASED [None]
  - VOMITING [None]
  - CONSTIPATION [None]
  - RASH [None]
  - NAUSEA [None]
  - ADVERSE DRUG REACTION [None]
